FAERS Safety Report 23234843 (Version 1)
Quarter: 2023Q4

REPORT INFORMATION
  Report Type: Spontaneous
  Country: US (occurrence: None)
  Receive Date: 20231127
  Receipt Date: 20231127
  Transmission Date: 20240109
  Serious: No
  Sender: FDA-Public Use
  Company Number: None

PATIENT
  Age: 64 Year
  Sex: Female
  Weight: 83.25 kg

DRUGS (1)
  1. DILAUDID [Suspect]
     Active Substance: HYDROMORPHONE HYDROCHLORIDE
     Indication: Pain
     Route: 042

REACTIONS (10)
  - Vomiting [None]
  - Muscle spasms [None]
  - Chills [None]
  - Headache [None]
  - Neck pain [None]
  - Lacrimation increased [None]
  - Malaise [None]
  - Dehydration [None]
  - Refusal of treatment by patient [None]
  - Neck pain [None]

NARRATIVE: CASE EVENT DATE: 20231125
